FAERS Safety Report 10151492 (Version 1)
Quarter: 2014Q2

REPORT INFORMATION
  Report Type: Spontaneous
  Country: DE (occurrence: DE)
  Receive Date: 20140503
  Receipt Date: 20140503
  Transmission Date: 20141212
  Serious: Yes (Hospitalization, Other)
  Sender: FDA-Public Use
  Company Number: DE-ACCORD-023420

PATIENT
  Age: 73 Year
  Sex: Male
  Weight: 93 kg

DRUGS (1)
  1. LEVETIRACETAM [Suspect]
     Indication: PARTIAL SEIZURES WITH SECONDARY GENERALISATION
     Route: 048

REACTIONS (6)
  - Stupor [Recovered/Resolved]
  - Overdose [Unknown]
  - Gait disturbance [Recovered/Resolved]
  - Foot fracture [Unknown]
  - Anaemia [Unknown]
  - Fatigue [Recovered/Resolved]
